FAERS Safety Report 5880025-X (Version None)
Quarter: 2008Q3

REPORT INFORMATION
  Report Type: 
  Country: None (occurrence: None)
  Receive Date: 20080912
  Receipt Date: 20080902
  Transmission Date: 20090109
  Serious: Yes (Other)
  Sender: FDA-Public Use
  Company Number: CA-PFIZER INC-2008066669

PATIENT
  Sex: Female
  Weight: 47.6 kg

DRUGS (2)
  1. CHANTIX [Suspect]
     Indication: SMOKING CESSATION THERAPY
     Route: 048
     Dates: start: 20080527, end: 20080728
  2. ALCOHOL [Suspect]

REACTIONS (9)
  - ABNORMAL BEHAVIOUR [None]
  - HANGOVER [None]
  - ILL-DEFINED DISORDER [None]
  - LACERATION [None]
  - MEMORY IMPAIRMENT [None]
  - SCRATCH [None]
  - STOMACH DISCOMFORT [None]
  - SUICIDE ATTEMPT [None]
  - VOMITING [None]
